FAERS Safety Report 5790912-9 (Version None)
Quarter: 2008Q2

REPORT INFORMATION
  Report Type: 
  Country: None (occurrence: None)
  Receive Date: 20080626
  Receipt Date: 20080509
  Transmission Date: 20081010
  Serious: No
  Sender: FDA-Public Use
  Company Number: A0727212A

PATIENT

DRUGS (1)
  1. ALLI [Suspect]

REACTIONS (6)
  - OEDEMA PERIPHERAL [None]
  - RECTAL DISCHARGE [None]
  - STEATORRHOEA [None]
  - SWELLING [None]
  - SWELLING FACE [None]
  - WEIGHT INCREASED [None]
